FAERS Safety Report 4358561-7 (Version None)
Quarter: 2004Q2

REPORT INFORMATION
  Report Type: 
  Country: None (occurrence: None)
  Receive Date: 20040512
  Receipt Date: 20040430
  Transmission Date: 20050107
  Serious: No
  Sender: FDA-Public Use
  Company Number: 04P-044-0259619-00

PATIENT
  Age: 50 Year
  Sex: Female

DRUGS (7)
  1. HUMIRA [Suspect]
     Indication: RHEUMATOID ARTHRITIS
     Dosage: 40 MG, 1 IN 14 D, SUBCUTANEOUS
     Route: 058
     Dates: start: 20040202, end: 20040211
  2. PREDNISOLONE [Concomitant]
  3. CALCIUM [Concomitant]
  4. ALBYL-ENTEROSOLUBILE [Concomitant]
  5. OMEPRAZOLE [Concomitant]
  6. MELOXICAM [Concomitant]
  7. FELODIPINE [Concomitant]

REACTIONS (1)
  - THROMBOCYTOPENIA [None]
